FAERS Safety Report 4311379-3 (Version None)
Quarter: 2004Q1

REPORT INFORMATION
  Report Type: 
  Country: None (occurrence: None)
  Receive Date: 20040302
  Receipt Date: 20040224
  Transmission Date: 20041129
  Serious: Yes (Life-Threatening, Hospitalization, Disabling)
  Sender: FDA-Public Use
  Company Number: 10050036-NA01-1

PATIENT
  Age: 26 Year
  Sex: Female

DRUGS (16)
  1. TRAVASOL 10% [Suspect]
     Indication: CROHN'S DISEASE
     Dosage: CONTINUOUS, INTRAVENOUS
     Route: 042
  2. MERCAPTOPURINE [Concomitant]
  3. MESALAMINE [Concomitant]
  4. NEOMYCIN [Concomitant]
  5. CORTICOSTEROIDS [Concomitant]
  6. AUTOMIX: INTRALIPID [Concomitant]
  7. TRAVESOL [Concomitant]
  8. DEXTROSE [Concomitant]
  9. STERILE WATER FOR INJECTION [Concomitant]
  10. MICROMIX: SODIUM CHLORIDE [Concomitant]
  11. SODIUM ACETATE [Concomitant]
  12. POTASSIUM CHLORIDE [Concomitant]
  13. POTASSIUM ACETATE [Concomitant]
  14. MAGNESIUM SULFATE [Concomitant]
  15. CALCIUM GLUCONATE [Concomitant]
  16. SELENIUM TRACE METAL ADDITIVE [Concomitant]

REACTIONS (17)
  - ANGIOPATHY [None]
  - ARTERIAL OCCLUSIVE DISEASE [None]
  - ATELECTASIS [None]
  - COMPUTERISED TOMOGRAM ABNORMAL [None]
  - COUGH [None]
  - CRACKLES LUNG [None]
  - DEHYDRATION [None]
  - DYSPNOEA [None]
  - EMBOLISM [None]
  - EXERCISE TOLERANCE DECREASED [None]
  - FISTULA [None]
  - GRANULOMA [None]
  - LYMPHADENOPATHY [None]
  - MARKEDLY REDUCED DIETARY INTAKE [None]
  - PULMONARY ARTERY THROMBOSIS [None]
  - PULMONARY FUNCTION TEST DECREASED [None]
  - PYREXIA [None]
